FAERS Safety Report 7910212-8 (Version None)
Quarter: 2011Q4

REPORT INFORMATION
  Report Type: 
  Country: None (occurrence: None)
  Receive Date: 20111111
  Receipt Date: 20111007
  Transmission Date: 20120403
  Serious: Yes (Death)
  Sender: FDA-Public Use
  Company Number: BR-ROCHE-699255

PATIENT
  Sex: Female
  Weight: 67.7 kg

DRUGS (10)
  1. ACTEMRA [Suspect]
     Indication: RHEUMATOID ARTHRITIS
     Dosage: LAST DOSE PRIOR TO SAE ON 31 MARCH 2010.
     Route: 042
  2. FOLIC ACID [Concomitant]
  3. CALCIUM CARBONATE [Concomitant]
  4. METHOTREXATE [Suspect]
     Route: 048
  5. PREDNISONE TAB [Concomitant]
  6. NAPROXEN [Concomitant]
  7. ENALAPRIL MALEATE [Concomitant]
  8. METHOTREXATE [Suspect]
     Indication: RHEUMATOID ARTHRITIS
     Dosage: LAST DOSE PRIOR TO SAE ON 31 MARCH 2010.
     Route: 048
  9. HYDROCHLOROTHIAZIDE [Concomitant]
  10. OMEPRAZOLE [Concomitant]
     Dates: start: 20080101

REACTIONS (1)
  - MENINGITIS [None]
